FAERS Safety Report 5382181-9 (Version None)
Quarter: 2007Q3

REPORT INFORMATION
  Report Type: 
  Country: None (occurrence: None)
  Receive Date: 20070709
  Receipt Date: 20070627
  Transmission Date: 20080115
  Serious: Yes (Other)
  Sender: FDA-Public Use
  Company Number: US-PFIZER INC-2007053368

PATIENT
  Sex: Male
  Weight: 73 kg

DRUGS (1)
  1. CAVERJECT POWDER, STERILE [Suspect]
     Indication: ERECTILE DYSFUNCTION

REACTIONS (4)
  - ERECTION INCREASED [None]
  - METASTASIS [None]
  - PROSTATIC SPECIFIC ANTIGEN INCREASED [None]
  - WEIGHT DECREASED [None]
